FAERS Safety Report 5932419-1 (Version None)
Quarter: 2008Q4

REPORT INFORMATION
  Report Type: 
  Country: None (occurrence: None)
  Receive Date: 20081027
  Receipt Date: 20081027
  Transmission Date: 20090506
  Serious: Yes (Life-Threatening, Hospitalization)
  Sender: FDA-Public Use
  Company Number: None

PATIENT
  Sex: Male
  Weight: 99.7913 kg

DRUGS (2)
  1. PROZAC [Suspect]
     Indication: DEPRESSION
     Dosage: 20MG TWICE DAILY PO
     Route: 048
     Dates: start: 20080315, end: 20081012
  2. PROZAC [Suspect]
     Indication: DEPRESSION
     Dosage: 10MG ONCE DAILY, AM PO
     Route: 048
     Dates: start: 20080927, end: 20081012

REACTIONS (4)
  - ILL-DEFINED DISORDER [None]
  - INCORRECT DOSE ADMINISTERED [None]
  - PANIC ATTACK [None]
  - SUICIDE ATTEMPT [None]
